FAERS Safety Report 11879951 (Version 2)
Quarter: 2016Q1

REPORT INFORMATION
  Report Type: Spontaneous
  Country: FR (occurrence: FR)
  Receive Date: 20151230
  Receipt Date: 20160302
  Transmission Date: 20160526
  Serious: Yes (Hospitalization)
  Sender: FDA-Public Use
  Company Number: FR-ABBVIE-15P-056-1529603-00

PATIENT
  Age: 87 Year
  Sex: Female

DRUGS (4)
  1. DEPAKINE [Suspect]
     Active Substance: VALPROATE SODIUM
     Dosage: DAILY
     Route: 048
     Dates: start: 20151130
  2. DEPAKINE [Suspect]
     Active Substance: VALPROATE SODIUM
     Dosage: TWICE A DAY
     Route: 048
     Dates: start: 20151030, end: 20151129
  3. DEPAKINE [Suspect]
     Active Substance: VALPROATE SODIUM
     Indication: PRODUCT USED FOR UNKNOWN INDICATION
     Dosage: DAILY
     Route: 048
     Dates: start: 2006, end: 20150929
  4. DEPAKINE [Suspect]
     Active Substance: VALPROATE SODIUM
     Dosage: TWICE A DAY
     Route: 048
     Dates: start: 20150930, end: 20151029

REACTIONS (1)
  - Parkinsonism [Recovered/Resolved]

NARRATIVE: CASE EVENT DATE: 20150928
